FAERS Safety Report 18489238 (Version 2)
Quarter: 2020Q4

REPORT INFORMATION
  Report Type: Spontaneous
  Country: FR (occurrence: FR)
  Receive Date: 20201111
  Receipt Date: 20201217
  Transmission Date: 20210114
  Serious: Yes (Hospitalization, Other)
  Sender: FDA-Public Use
  Company Number: FR-B.I. PHARMACEUTICALS,INC./RIDGEFIELD-2020-BI-059999

PATIENT
  Age: 85 Year
  Sex: Female
  Weight: 73 kg

DRUGS (10)
  1. AUGMENTIN [Suspect]
     Active Substance: AMOXICILLIN\CLAVULANATE POTASSIUM
     Indication: INFECTION
     Route: 048
     Dates: start: 20200929, end: 20201006
  2. IOMERON [Suspect]
     Active Substance: IOMEPROL
     Indication: IMAGING PROCEDURE
     Route: 042
     Dates: start: 20201002
  3. PANTOPRAZOLE [Suspect]
     Active Substance: PANTOPRAZOLE
     Indication: PROPHYLAXIS AGAINST GASTROINTESTINAL ULCER
     Route: 048
     Dates: start: 20200927
  4. METFORMINE [METFORMIN] [Concomitant]
     Active Substance: METFORMIN HYDROCHLORIDE
     Indication: TYPE 2 DIABETES MELLITUS
     Route: 048
     Dates: start: 20200927, end: 20201005
  5. RIVASTIGMINE HYDROGEN TARTRATE [Suspect]
     Active Substance: RIVASTIGMINE TARTRATE
     Indication: DEMENTIA
     Route: 048
     Dates: start: 20200928, end: 20201012
  6. KARDEGIC [Suspect]
     Active Substance: ASPIRIN DL-LYSINE
     Indication: CARDIOVASCULAR DISORDER
     Route: 048
     Dates: start: 20201007, end: 20201014
  7. SERTRALINE HYDROCHLORIDE. [Suspect]
     Active Substance: SERTRALINE HYDROCHLORIDE
     Indication: PRODUCT USED FOR UNKNOWN INDICATION
     Route: 048
     Dates: start: 20200927
  8. ATORVASTATINE [ATORVASTATIN] [Suspect]
     Active Substance: ATORVASTATIN
     Indication: CARDIOVASCULAR DISORDER
     Route: 048
     Dates: start: 20201006, end: 20201013
  9. PRADAXA [Suspect]
     Active Substance: DABIGATRAN ETEXILATE MESYLATE
     Indication: ANTICOAGULANT THERAPY
     Route: 048
     Dates: start: 20200927
  10. BISOCE [Suspect]
     Active Substance: BISOPROLOL
     Indication: CARDIOVASCULAR DISORDER
     Route: 048
     Dates: start: 20200930, end: 20201014

REACTIONS (3)
  - Acute kidney injury [Recovered/Resolved]
  - Toxic skin eruption [Not Recovered/Not Resolved]
  - Diarrhoea [Not Recovered/Not Resolved]

NARRATIVE: CASE EVENT DATE: 20201005
